FAERS Safety Report 4925732-8 (Version None)
Quarter: 2006Q1

REPORT INFORMATION
  Report Type: 
  Country: None (occurrence: None)
  Receive Date: 20060228
  Receipt Date: 20050131
  Transmission Date: 20060701
  Serious: No
  Sender: FDA-Public Use
  Company Number: US-GLAXOSMITHKLINE-A0543276A

PATIENT
  Age: 6 Year
  Sex: Male

DRUGS (7)
  1. LAMICTAL [Suspect]
     Route: 048
     Dates: start: 20050128
  2. KLONOPIN [Suspect]
     Route: 065
  3. BACLOFEN [Concomitant]
     Route: 065
  4. TOPAMAX [Concomitant]
  5. MIRALAX [Concomitant]
  6. POLYVISOL [Concomitant]
  7. PREVACID [Concomitant]

REACTIONS (1)
  - IRRITABILITY [None]
